FAERS Safety Report 17292633 (Version 1)
Quarter: 2020Q1

REPORT INFORMATION
  Report Type: Spontaneous
  Country: US (occurrence: US)
  Receive Date: 20200101
  Receipt Date: 20200101
  Transmission Date: 20200409
  Serious: No
  Sender: FDA-Public Use
  Company Number: None

PATIENT
  Age: 5 Year
  Sex: Female
  Weight: 18.6 kg

DRUGS (1)
  1. LACTOBACILLUS PLANTURM 299V [Suspect]
     Active Substance: LACTOBACILLUS PLANTARUM
     Dates: end: 20191224

REACTIONS (3)
  - Ascites [None]
  - Abdominal distension [None]
  - Venoocclusive liver disease [None]

NARRATIVE: CASE EVENT DATE: 20191224
